FAERS Safety Report 25268531 (Version 2)
Quarter: 2025Q2

REPORT INFORMATION
  Report Type: Spontaneous
  Country: NL (occurrence: NL)
  Receive Date: 20250505
  Receipt Date: 20250526
  Transmission Date: 20250716
  Serious: Yes (Hospitalization)
  Sender: ACCORD
  Company Number: None

PATIENT
  Age: 74 Year
  Sex: Male
  Weight: 96 kg

DRUGS (2)
  1. ALLOPURINOL [Suspect]
     Active Substance: ALLOPURINOL
     Indication: Plasma cell myeloma
     Dates: start: 20250306, end: 20250318
  2. COTRIMOXAZOLE [Suspect]
     Active Substance: SULFAMETHOXAZOLE\TRIMETHOPRIM
     Indication: Plasma cell myeloma
     Dosage: 1X PER DAY, STRENGTH: 16/80 MG/ML
     Dates: start: 20250206, end: 20250318

REACTIONS (3)
  - Rash erythematous [Not Recovered/Not Resolved]
  - Oedema peripheral [Unknown]
  - Erythema multiforme [Not Recovered/Not Resolved]
